FAERS Safety Report 9733881 (Version 3)
Quarter: 2014Q3

REPORT INFORMATION
  Report Type: Spontaneous
  Country: US (occurrence: US)
  Receive Date: 20131205
  Receipt Date: 20140905
  Transmission Date: 20150326
  Serious: Yes (Disabling, Other)
  Sender: FDA-Public Use
  Company Number: US-009507513-1312USA001829

PATIENT
  Sex: Female
  Weight: 61.22 kg

DRUGS (4)
  1. ALENDRONATE SODIUM. [Suspect]
     Active Substance: ALENDRONATE SODIUM
     Indication: OSTEOPOROSIS PROPHYLAXIS
     Dosage: 70 MG, UNK
     Route: 048
     Dates: start: 200802, end: 20120403
  2. FOSAMAX [Suspect]
     Active Substance: ALENDRONATE SODIUM
     Indication: OSTEOPOROSIS PROPHYLAXIS
     Dosage: 70 MG, QW
     Route: 048
     Dates: start: 1995, end: 200802
  3. FOSAMAX [Suspect]
     Active Substance: ALENDRONATE SODIUM
     Indication: OSTEOPOROSIS
  4. ALENDRONATE SODIUM. [Suspect]
     Active Substance: ALENDRONATE SODIUM
     Indication: OSTEOPOROSIS

REACTIONS (42)
  - Gastric ulcer surgery [Unknown]
  - Osteoarthritis [Unknown]
  - Seborrhoeic keratosis [Unknown]
  - Vitamin D decreased [Unknown]
  - Rib fracture [Unknown]
  - Hypoaesthesia [Unknown]
  - Gastric ulcer [Unknown]
  - Spinal laminectomy [Unknown]
  - Acrochordon [Unknown]
  - Cataract [Unknown]
  - Fatigue [Unknown]
  - Meniere^s disease [Recovering/Resolving]
  - Upper limb fracture [Unknown]
  - Appendicectomy [Unknown]
  - Intramedullary rod insertion [Unknown]
  - Vertigo positional [Unknown]
  - Sleep disorder [Unknown]
  - Ligament sprain [Unknown]
  - Muscle spasms [Unknown]
  - Hyperlipidaemia [Unknown]
  - Ataxia [Unknown]
  - Constipation [Unknown]
  - Femur fracture [Not Recovered/Not Resolved]
  - Labyrinthitis [Recovering/Resolving]
  - Contusion [Unknown]
  - Acetabulum fracture [Not Recovered/Not Resolved]
  - Osteoporosis [Not Recovered/Not Resolved]
  - Foot fracture [Unknown]
  - Biopsy breast [Unknown]
  - Depression [Unknown]
  - Sciatica [Unknown]
  - Herpes zoster [Unknown]
  - Rheumatoid arthritis [Unknown]
  - Hysterectomy [Unknown]
  - Syncope [Unknown]
  - Muscular weakness [Unknown]
  - Gastrooesophageal reflux disease [Unknown]
  - Low turnover osteopathy [Not Recovered/Not Resolved]
  - Foot deformity [Unknown]
  - Type 2 diabetes mellitus [Unknown]
  - Diabetic complication [Unknown]
  - Polypectomy [Unknown]

NARRATIVE: CASE EVENT DATE: 20060914
